FAERS Safety Report 9116647 (Version 1)
Quarter: 2013Q1

REPORT INFORMATION
  Report Type: Spontaneous
  Country: US (occurrence: US)
  Receive Date: 20130225
  Receipt Date: 20130225
  Transmission Date: 20140127
  Serious: Yes (Hospitalization)
  Sender: FDA-Public Use
  Company Number: PHEH2013US004334

PATIENT
  Sex: Male

DRUGS (9)
  1. TOBI [Suspect]
     Indication: CHRONIC OBSTRUCTIVE PULMONARY DISEASE
     Dosage: 300 MG, QD
  2. DIGOXIN [Concomitant]
  3. POTASSIUM [Concomitant]
  4. TYLENOL [Concomitant]
  5. ADVIL ALLERGY AND CONGESTION RELIEF [Concomitant]
  6. MEGACE [Concomitant]
  7. MULTI-VIT [Concomitant]
  8. FLOMAX ^BOEHRINGER INGELHEIM^ [Concomitant]
  9. MUCINEX [Concomitant]

REACTIONS (6)
  - Myocardial infarction [Unknown]
  - Hyperhidrosis [Unknown]
  - Dyspnoea [Unknown]
  - Renal mass [Unknown]
  - Abdominal tenderness [Unknown]
  - Headache [Unknown]
